FAERS Safety Report 23470573 (Version 3)
Quarter: 2024Q1

REPORT INFORMATION
  Report Type: Spontaneous
  Country: BR (occurrence: None)
  Receive Date: 20240202
  Receipt Date: 20240315
  Transmission Date: 20240410
  Serious: Yes (Other)
  Sender: FDA-Public Use
  Company Number: 2024A023398

PATIENT
  Sex: Male

DRUGS (2)
  1. TEZSPIRE [Suspect]
     Active Substance: TEZEPELUMAB-EKKO
     Indication: Asthma
     Dosage: 210MG/ML MONTHLY
     Route: 058
     Dates: start: 20231220, end: 20240117
  2. TEZSPIRE [Suspect]
     Active Substance: TEZEPELUMAB-EKKO
     Indication: Asthma
     Route: 058
     Dates: start: 20240122

REACTIONS (4)
  - Blindness [Unknown]
  - Visual acuity reduced [Unknown]
  - Vision blurred [Unknown]
  - Visual impairment [Unknown]
